FAERS Safety Report 5964310-9 (Version None)
Quarter: 2008Q4

REPORT INFORMATION
  Report Type: 
  Country: None (occurrence: None)
  Receive Date: 20081124
  Receipt Date: 20081116
  Transmission Date: 20090506
  Serious: Yes (Other)
  Sender: FDA-Public Use
  Company Number: US-PFIZER INC-2008043237

PATIENT
  Sex: Female
  Weight: 90.7 kg

DRUGS (11)
  1. ZOLOFT [Suspect]
     Indication: DEPRESSION
  2. ZOLOFT [Suspect]
     Indication: ANXIETY
  3. LANTUS [Concomitant]
  4. INSULIN GLULISINE [Concomitant]
  5. XANAX [Concomitant]
  6. CRESTOR [Concomitant]
  7. TRAZODONE HCL [Concomitant]
  8. ALL OTHER THERAPEUTIC PRODUCTS [Concomitant]
  9. TYLENOL (CAPLET) [Concomitant]
  10. SLEEP AID [Concomitant]
  11. ZETIA [Concomitant]

REACTIONS (13)
  - ABDOMINAL DISTENSION [None]
  - ABDOMINAL PAIN UPPER [None]
  - CONSTIPATION [None]
  - DEPENDENCE [None]
  - DEPRESSION [None]
  - DIABETES MELLITUS [None]
  - DIARRHOEA [None]
  - DRUG INEFFECTIVE [None]
  - FEELING ABNORMAL [None]
  - FEELING GUILTY [None]
  - GASTRIC DISORDER [None]
  - HANGOVER [None]
  - SELF INJURIOUS BEHAVIOUR [None]
